FAERS Safety Report 22309936 (Version 1)
Quarter: 2023Q2

REPORT INFORMATION
  Report Type: Spontaneous
  Country: US (occurrence: None)
  Receive Date: 20230510
  Receipt Date: 20230510
  Transmission Date: 20230721
  Serious: Yes (Disabling, Other)
  Sender: FDA-Public Use
  Company Number: None

PATIENT
  Age: 56 Year
  Sex: Female
  Weight: 63 kg

DRUGS (6)
  1. LIDOCAINE HYDROCHLORIDE [Suspect]
     Active Substance: LIDOCAINE HYDROCHLORIDE
     Indication: Oral pain
     Dosage: OTHER QUANTITY : 100 OUNCE(S);?OTHER FREQUENCY : EVERY 3 HOURS;?
     Route: 048
     Dates: start: 20180801, end: 20230508
  2. VALTREX [Concomitant]
     Active Substance: VALACYCLOVIR HYDROCHLORIDE
  3. MELOXICAM [Concomitant]
     Active Substance: MELOXICAM
  4. HYDROXYZINE [Concomitant]
     Active Substance: HYDROXYZINE HYDROCHLORIDE
  5. Oral Lidocaine [Concomitant]
  6. ACETAMINOPHEN\PSEUDOEPHEDRINE [Concomitant]
     Active Substance: ACETAMINOPHEN\PSEUDOEPHEDRINE

REACTIONS (7)
  - Impaired healing [None]
  - Condition aggravated [None]
  - Impaired quality of life [None]
  - Toxicity to various agents [None]
  - Feeling of despair [None]
  - Depression [None]
  - Suspected product quality issue [None]

NARRATIVE: CASE EVENT DATE: 20180801
